FAERS Safety Report 4825638-9 (Version None)
Quarter: 2005Q4

REPORT INFORMATION
  Report Type: 
  Country: None (occurrence: None)
  Receive Date: 20051111
  Receipt Date: 20051104
  Transmission Date: 20060501
  Serious: Yes (Hospitalization)
  Sender: FDA-Public Use
  Company Number: US-MERCK-0511USA00913

PATIENT
  Age: 79 Year
  Sex: Female

DRUGS (5)
  1. HYZAAR [Suspect]
     Indication: HYPERTENSION
     Route: 048
     Dates: start: 20050801, end: 20050901
  2. TOPROL-XL [Concomitant]
     Route: 065
  3. ZOCOR [Concomitant]
     Route: 065
  4. LASIX [Concomitant]
     Route: 065
  5. POTASSIUM (UNSPECIFIED) [Concomitant]
     Route: 065

REACTIONS (2)
  - CARDIAC FAILURE [None]
  - RENAL IMPAIRMENT [None]
